FAERS Safety Report 9704030 (Version 1)
Quarter: 2013Q4

REPORT INFORMATION
  Report Type: Spontaneous
  Country: US (occurrence: None)
  Receive Date: 20131121
  Receipt Date: 20131121
  Transmission Date: 20140711
  Serious: Yes (Hospitalization)
  Sender: FDA-Public Use
  Company Number: None

PATIENT
  Age: 61 Year
  Sex: Male
  Weight: 59.8 kg

DRUGS (2)
  1. DOCETAXEL [Suspect]
     Route: 042
     Dates: start: 20131029, end: 20131029
  2. SURAMIN [Suspect]
     Route: 042
     Dates: start: 20131029, end: 20131029

REACTIONS (2)
  - Chest pain [None]
  - Pleural effusion [None]
